FAERS Safety Report 9011386 (Version 2)
Quarter: 2013Q1

REPORT INFORMATION
  Report Type: Spontaneous
  Country: US (occurrence: US)
  Receive Date: 20130108
  Receipt Date: 20130226
  Transmission Date: 20140127
  Serious: No
  Sender: FDA-Public Use
  Company Number: US-PFIZER INC-2013004831

PATIENT
  Age: 27 Year
  Sex: Female
  Weight: 58.96 kg

DRUGS (1)
  1. ADVIL [Suspect]
     Indication: HEADACHE
     Dosage: 400 MG (TWO TABLETS OF 200 MG TOGETHER), UNK
     Route: 048
     Dates: start: 2012, end: 20130103

REACTIONS (3)
  - Drug ineffective [Unknown]
  - Poor quality drug administered [Unknown]
  - Product quality issue [Unknown]
